FAERS Safety Report 6266345-8 (Version None)
Quarter: 2009Q3

REPORT INFORMATION
  Report Type: 
  Country: None (occurrence: None)
  Receive Date: 20090713
  Receipt Date: 20090701
  Transmission Date: 20100115
  Serious: Yes (Other)
  Sender: FDA-Public Use
  Company Number: DE-ELI_LILLY_AND_COMPANY-DE200904005546

PATIENT
  Age: 58 Year
  Sex: Female

DRUGS (10)
  1. BYETTA [Suspect]
     Indication: TYPE 2 DIABETES MELLITUS
     Dosage: 5 UG, 2/D
     Route: 058
     Dates: start: 20090114, end: 20090115
  2. BYETTA [Suspect]
     Dosage: 10 UG, 2/D
     Route: 058
     Dates: start: 20090116, end: 20090401
  3. SIMVAHEXAL [Concomitant]
     Dosage: 30 MG, UNK
     Dates: start: 20080610
  4. FLUOXETINE HYDROCHLORIDE [Concomitant]
     Dosage: 20 MG, UNKNOWN
     Route: 065
     Dates: start: 20080610
  5. METOHEXAL [Concomitant]
     Dosage: 100 D/F, UNK
     Dates: start: 20090205
  6. CARMEN [Concomitant]
     Dates: start: 20090205
  7. LISIHEXAL COMP [Concomitant]
     Dosage: 20MG/12.5MG
     Dates: start: 20090205
  8. METFORMIN HCL [Concomitant]
     Dosage: 1000 D/F, UNK
     Dates: start: 20090205
  9. GLIMEPIRIDE [Concomitant]
     Dosage: 2 MG, UNKNOWN
     Route: 065
     Dates: start: 20090407
  10. OMEP [Concomitant]
     Dosage: 20 MG, UNKNOWN
     Route: 065
     Dates: start: 20090407

REACTIONS (1)
  - PANCREATITIS [None]
